FAERS Safety Report 15621437 (Version 2)
Quarter: 2018Q4

REPORT INFORMATION
  Report Type: Report from Study
  Country: JP (occurrence: JP)
  Receive Date: 20181115
  Receipt Date: 20181120
  Transmission Date: 20190205
  Serious: Yes (Hospitalization, Other)
  Sender: FDA-Public Use
  Company Number: JP-AMGEN-JPNNI2018163212

PATIENT
  Age: 51 Year
  Sex: Female
  Weight: 51 kg

DRUGS (5)
  1. DEXAMETHASONE. [Concomitant]
     Active Substance: DEXAMETHASONE
     Dosage: 16.5 MG
     Route: 065
     Dates: start: 20170808, end: 20170829
  2. VICCLOX [Concomitant]
     Active Substance: ACYCLOVIR SODIUM
     Indication: ANTIVIRAL PROPHYLAXIS
     Dosage: 200 MG, QD
     Route: 065
  3. DEXAMETHASONE. [Concomitant]
     Active Substance: DEXAMETHASONE
     Indication: PLASMA CELL MYELOMA
     Dosage: 16.5 MG
     Route: 065
     Dates: start: 20170725, end: 20170726
  4. CARFILZOMIB [Suspect]
     Active Substance: CARFILZOMIB
     Dosage: 60 MG/M2, UNK
     Route: 041
     Dates: start: 20170808, end: 20170829
  5. CARFILZOMIB [Suspect]
     Active Substance: CARFILZOMIB
     Indication: PLASMA CELL MYELOMA
     Dosage: 28 MG/M2, QD
     Route: 041
     Dates: start: 20170725, end: 20170726

REACTIONS (4)
  - Cardiac failure congestive [Recovering/Resolving]
  - Pulmonary hypertension [Recovering/Resolving]
  - Chest pain [Recovered/Resolved]
  - Bone marrow failure [Recovered/Resolved]

NARRATIVE: CASE EVENT DATE: 20170731
